FAERS Safety Report 5050740-9 (Version None)
Quarter: 2006Q3

REPORT INFORMATION
  Report Type: 
  Country: None (occurrence: None)
  Receive Date: 20060707
  Receipt Date: 20060626
  Transmission Date: 20061208
  Serious: Yes (Hospitalization)
  Sender: FDA-Public Use
  Company Number: S06-UKI-01577-01

PATIENT
  Age: 46 Year
  Sex: Female

DRUGS (2)
  1. CITALOPRAM HYDROBROMIDE [Suspect]
     Indication: DEPRESSION
     Dosage: 20 MG QD PO
     Route: 048
     Dates: start: 19991021, end: 19990101
  2. CHLORDIAZEPOXIDE [Concomitant]

REACTIONS (4)
  - LOSS OF CONSCIOUSNESS [None]
  - PANIC ATTACK [None]
  - PHOTOPHOBIA [None]
  - SPEECH DISORDER [None]
